FAERS Safety Report 22295741 (Version 1)
Quarter: 2023Q2

REPORT INFORMATION
  Report Type: Report from Study
  Country: US (occurrence: US)
  Receive Date: 20230508
  Receipt Date: 20230508
  Transmission Date: 20230722
  Serious: Yes (Other)
  Sender: FDA-Public Use
  Company Number: US-JAZZ-2022-US-030242

PATIENT
  Sex: Male

DRUGS (9)
  1. XYREM [Suspect]
     Active Substance: SODIUM OXYBATE
     Indication: Narcolepsy
     Dosage: UNK
  2. ADDERALL [Concomitant]
     Active Substance: AMPHETAMINE ASPARTATE\AMPHETAMINE SULFATE\DEXTROAMPHETAMINE SACCHARATE\DEXTROAMPHETAMINE SULFATE
     Dosage: UNK
     Dates: start: 20180115
  3. CLONAZEPAM [Concomitant]
     Active Substance: CLONAZEPAM
     Dosage: UNK
     Dates: start: 20150710
  4. HUMALOG [Concomitant]
     Active Substance: INSULIN LISPRO
     Dosage: 100 UNIT/ML VIAL
     Dates: start: 20160119
  5. HYDROXYZINE HYDROCHLORIDE [Concomitant]
     Active Substance: HYDROXYZINE HYDROCHLORIDE
     Dosage: UNK
     Dates: start: 20180104
  6. SUMATRIPTAN SUCCINATE [Concomitant]
     Active Substance: SUMATRIPTAN SUCCINATE
     Dosage: UNK
     Dates: start: 20171115
  7. CREON [Concomitant]
     Active Substance: PANCRELIPASE AMYLASE\PANCRELIPASE LIPASE\PANCRELIPASE PROTEASE
     Dosage: 6000 UNIT
     Dates: start: 20180912
  8. VIIBRYD [Concomitant]
     Active Substance: VILAZODONE HYDROCHLORIDE
     Dosage: UNK
     Dates: start: 20180711
  9. FIASP [Concomitant]
     Active Substance: INSULIN ASPART
     Dosage: 100 UNIT/ML FLEXTOUCH
     Dates: start: 20180307

REACTIONS (21)
  - Neuropathy peripheral [Unknown]
  - Urinary retention [Unknown]
  - Post-traumatic stress disorder [Unknown]
  - Bile output increased [Unknown]
  - Hyperlipidaemia [Unknown]
  - Restless legs syndrome [Unknown]
  - Bronchitis [Unknown]
  - Neoplasm [Unknown]
  - Rhinitis allergic [Unknown]
  - Spinal osteoarthritis [Unknown]
  - Radiculopathy [Unknown]
  - Hypertonic bladder [Unknown]
  - Occipital neuralgia [Unknown]
  - Lipoma [Unknown]
  - Myofascial pain syndrome [Unknown]
  - Tachycardia [Unknown]
  - Irritable bowel syndrome [Unknown]
  - Temporomandibular joint syndrome [Unknown]
  - Carpal tunnel syndrome [Unknown]
  - Pain [Unknown]
  - Product administration interrupted [Unknown]
